FAERS Safety Report 21406538 (Version 3)
Quarter: 2022Q4

REPORT INFORMATION
  Report Type: Spontaneous
  Country: US (occurrence: US)
  Receive Date: 20221004
  Receipt Date: 20221202
  Transmission Date: 20230113
  Serious: No
  Sender: FDA-Public Use
  Company Number: US-PFIZER INC-PV202200073662

PATIENT
  Age: 77 Year
  Sex: Female

DRUGS (2)
  1. SUTENT [Suspect]
     Active Substance: SUNITINIB MALATE
     Dosage: (EVERY DAY, TAKE WHOLE WITH WATER FOR 3 WEEKS ON TREATMENT THAN 1 WEEKS OFF)
     Route: 048
     Dates: start: 2016
  2. SUTENT [Suspect]
     Active Substance: SUNITINIB MALATE
     Dosage: (TAKE DAILY X 7DAYS, THEN 7 DAYS OFF)
     Route: 048

REACTIONS (6)
  - Limb discomfort [Unknown]
  - Erythema [Unknown]
  - Pain in extremity [Unknown]
  - Skin exfoliation [Unknown]
  - Off label use [Unknown]
  - Product use issue [Unknown]
